FAERS Safety Report 10080919 (Version 2)
Quarter: 2014Q2

REPORT INFORMATION
  Report Type: Spontaneous
  Country: US (occurrence: None)
  Receive Date: 20140414
  Receipt Date: 20140425
  Transmission Date: 20141212
  Serious: Yes (Other)
  Sender: FDA-Public Use
  Company Number: AUR-APL-2014-04431

PATIENT
  Age: 68 Year
  Sex: Female
  Weight: 73.02 kg

DRUGS (9)
  1. METFORMIN (METFORMIN) [Suspect]
     Indication: DIABETES MELLITUS
     Dates: start: 2013
  2. CALAN SR [Suspect]
     Indication: HYPERTENSION
     Dosage: 150 MG (150 MG, 1 IN 1 D)
     Dates: start: 1990
  3. HYZAAR [Suspect]
     Indication: MALIGNANT HYPERTENSION
     Dosage: 100/25 MG (1 D)
     Dates: start: 1990
  4. ADVAIR DISKUS [Concomitant]
  5. SINGULAIR (MONTELUKAST SODIUM) [Concomitant]
  6. ALLEGRA (FEXOFENADINE HYDROCHLORIDE) [Concomitant]
  7. TYLENOL (PARACETAMOL) [Concomitant]
  8. OMEPRAZOLE (OMEPRAZOLE) [Concomitant]
  9. WELCHOL (COLESEVELAM HYDROCHLORIDE) [Concomitant]

REACTIONS (4)
  - Breast cancer [None]
  - Scar [None]
  - Blood pressure diastolic decreased [None]
  - Wrong technique in drug usage process [None]
